FAERS Safety Report 20378985 (Version 2)
Quarter: 2022Q1

REPORT INFORMATION
  Report Type: Spontaneous
  Country: JP (occurrence: JP)
  Receive Date: 20220126
  Receipt Date: 20220209
  Transmission Date: 20220423
  Serious: Yes (Other)
  Sender: FDA-Public Use
  Company Number: JP-ADVANZ PHARMA-202112008465

PATIENT

DRUGS (6)
  1. HYDROXYCHLOROQUINE SULFATE [Suspect]
     Active Substance: HYDROXYCHLOROQUINE SULFATE
     Indication: Overlap syndrome
     Dosage: 200 MG (FILM COATED TABLET)
     Route: 048
     Dates: start: 20190125, end: 20190221
  2. HYDROXYCHLOROQUINE SULFATE [Suspect]
     Active Substance: HYDROXYCHLOROQUINE SULFATE
     Indication: Systemic lupus erythematosus
     Dosage: 200/400 MG (FILM COATED TABLET)
     Route: 048
     Dates: start: 20190222, end: 20200730
  3. TACROLIMUS [Concomitant]
     Active Substance: TACROLIMUS
     Indication: Overlap syndrome
     Dosage: UNK
     Dates: start: 20190517
  4. PREDNISOLONE [Concomitant]
     Active Substance: PREDNISOLONE
     Indication: Overlap syndrome
     Dosage: 5-10 MG (MAINTAINENCE DOSE)
     Dates: start: 2016
  5. PREDNISOLONE [Concomitant]
     Active Substance: PREDNISOLONE
     Dosage: 20 MG (INCREASED)
     Dates: start: 201804, end: 20180530
  6. PREDNISOLONE [Concomitant]
     Active Substance: PREDNISOLONE
     Dosage: UNK
     Dates: start: 20220107

REACTIONS (2)
  - Glaucoma [Unknown]
  - Retinopathy [Unknown]

NARRATIVE: CASE EVENT DATE: 20200701
